FAERS Safety Report 9448218 (Version 2)
Quarter: 2013Q3

REPORT INFORMATION
  Report Type: Spontaneous
  Country: US (occurrence: US)
  Receive Date: 20130808
  Receipt Date: 20130926
  Transmission Date: 20140515
  Serious: No
  Sender: FDA-Public Use
  Company Number: US-009507513-1307USA011958

PATIENT
  Age: 57 Year
  Sex: Male

DRUGS (2)
  1. VICTRELIS [Suspect]
     Indication: CHRONIC HEPATITIS C
     Dosage: 800 MG, TID
     Route: 048
     Dates: start: 20130321
  2. ATIVAN [Suspect]

REACTIONS (9)
  - Respiratory disorder [Unknown]
  - Infection [Unknown]
  - Burning sensation [Unknown]
  - Hypoaesthesia [Unknown]
  - Dysphagia [Unknown]
  - Glossodynia [Unknown]
  - Oral fungal infection [Unknown]
  - Pain [Unknown]
  - Dysgeusia [Unknown]
